FAERS Safety Report 8366013-2 (Version None)
Quarter: 2012Q2

REPORT INFORMATION
  Report Type: 
  Country: None (occurrence: None)
  Receive Date: 20120515
  Receipt Date: 20120504
  Transmission Date: 20120825
  Serious: Yes (Life-Threatening, Hospitalization)
  Sender: FDA-Public Use
  Company Number: 2012HGS-003563

PATIENT
  Sex: Female
  Weight: 82 kg

DRUGS (11)
  1. FE-SUBSTITUTION (IRON) (IRON) [Concomitant]
  2. HYDROXYCHLOROQUINE SULFATE [Concomitant]
  3. IBUPROFEN TABLETS [Concomitant]
  4. BENLYSTA [Suspect]
     Indication: SYSTEMIC LUPUS ERYTHEMATOSUS
     Dosage: 1 IN 1 M
     Dates: start: 20111201, end: 20120201
  5. PANTOZOL (PANTOPRAZOLE SODIUM SESQUIHYDRATE) (PANTOPRAZONE SODIUM SESQ [Concomitant]
  6. L-THYROXIN (LEVOTHYROXINE SODIUM) (LEVOTHYROXINE SODIUM) [Concomitant]
  7. COLECALCIFEROL (COLECALCIFEROL) (COLESCALCIFEROL) [Concomitant]
  8. METHOTREXATE [Concomitant]
  9. NOVALGIN (NOVO-PETRIN) (CAFFINE, PARACETAMOL, PROPYPHENAZONE) [Concomitant]
  10. PREDNISOLON (PREDNISOLONE) (PREDNISOLONE) [Concomitant]
  11. FOLIC ACID [Concomitant]

REACTIONS (1)
  - LUPUS NEPHRITIS [None]
